FAERS Safety Report 9515593 (Version 1)
Quarter: 2013Q3

REPORT INFORMATION
  Report Type: Spontaneous
  Country: AU (occurrence: None)
  Receive Date: 20130909
  Receipt Date: 20130909
  Transmission Date: 20140515
  Serious: Yes (Life-Threatening, Other)
  Sender: FDA-Public Use
  Company Number: AUR-APL-2013-07405

PATIENT
  Sex: Female
  Weight: 2.44 kg

DRUGS (5)
  1. QUETIAPINE [Suspect]
     Indication: PRODUCT USED FOR UNKNOWN INDICATION
     Dosage: 300 MG ( 300 MG, 1 IN 1 D) , TRANSPLACENTAL
     Route: 064
  2. ZUCLOPENTHIXOL [Suspect]
     Indication: PRODUCT USED FOR UNKNOWN INDICATION
     Dosage: (U) , TRANSPLACENTAL
  3. FOLIC ACID (FOLIC ACID) [Concomitant]
  4. LABETALOL HYDROCHLORIDE) (LABETALOL) [Concomitant]
  5. LITHIUM CARBONATE (LITHIUM CARBONATE) [Concomitant]

REACTIONS (10)
  - Caesarean section [None]
  - Apgar score low [None]
  - Neonatal respiratory distress syndrome [None]
  - Hypotonia neonatal [None]
  - Drug withdrawal syndrome neonatal [None]
  - Myoclonus [None]
  - Somnolence [None]
  - Sneezing [None]
  - Yawning [None]
  - Maternal drugs affecting foetus [None]
